FAERS Safety Report 6707220-1 (Version None)
Quarter: 2010Q2

REPORT INFORMATION
  Report Type: 
  Country: None (occurrence: None)
  Receive Date: 20100503
  Receipt Date: 20090612
  Transmission Date: 20101027
  Serious: No
  Sender: FDA-Public Use
  Company Number: US-ASTRAZENECA-2009UW15137

PATIENT
  Age: 48 Year
  Sex: Female

DRUGS (9)
  1. NEXIUM [Suspect]
     Route: 048
  2. ADVAIR DISKUS 100/50 [Concomitant]
  3. ZYFLO [Concomitant]
  4. SINGULAIR [Concomitant]
  5. CELEXA [Concomitant]
  6. ALLEGRA D 24 HOUR [Concomitant]
  7. ALBUTEROL [Concomitant]
  8. RHINOCORT [Concomitant]
  9. KLONOPIN [Concomitant]

REACTIONS (2)
  - COUNTERFEIT DRUG ADMINISTERED [None]
  - DRUG INEFFECTIVE [None]
